FAERS Safety Report 7216016-6 (Version None)
Quarter: 2011Q1

REPORT INFORMATION
  Report Type: 
  Country: None (occurrence: None)
  Receive Date: 20110104
  Receipt Date: 20110104
  Transmission Date: 20110831
  Serious: Yes (Disabling, Other)
  Sender: FDA-Public Use
  Company Number: None

PATIENT
  Age: 72 Year
  Sex: Male
  Weight: 69.8539 kg

DRUGS (1)
  1. FLOMAX [Suspect]
     Indication: BLADDER DISORDER
     Dosage: 2 ONCE A DAY PO
     Route: 048
     Dates: start: 20000819, end: 20091101

REACTIONS (1)
  - FLOPPY IRIS SYNDROME [None]
